FAERS Safety Report 8521436-3 (Version None)
Quarter: 2012Q3

REPORT INFORMATION
  Report Type: 
  Country: None (occurrence: None)
  Receive Date: 20120719
  Receipt Date: 20120705
  Transmission Date: 20120928
  Serious: Yes (Hospitalization)
  Sender: FDA-Public Use
  Company Number: US-ACTELION-A-NJ2012-64328

PATIENT

DRUGS (18)
  1. EPOPROSTENOL SODIUM [Suspect]
     Indication: PULMONARY ARTERIAL HYPERTENSION
     Dosage: 6 NG/KG, PER MIN
     Route: 041
     Dates: start: 20120315, end: 20120608
  2. METOLAZONE [Concomitant]
  3. ADVAIR DISKUS 100/50 [Concomitant]
  4. POTASSIUM CHLORIDE [Concomitant]
  5. DIGOXIN [Concomitant]
  6. LETAIRIS [Concomitant]
  7. NOVOLOG [Concomitant]
  8. MAGNESIUM SULFATE [Concomitant]
  9. ZOCOR [Concomitant]
  10. SILDENAFIL [Concomitant]
  11. ALDACTONE [Concomitant]
  12. MILRINONE LACTATE [Concomitant]
  13. LANTUS [Concomitant]
  14. MULTI-VITAMIN [Concomitant]
  15. METOPROLOL SUCCINATE [Concomitant]
  16. COLACE [Concomitant]
  17. COUMADIN [Concomitant]
  18. TORSEMIDE [Concomitant]

REACTIONS (15)
  - HEADACHE [None]
  - WEIGHT INCREASED [None]
  - MALAISE [None]
  - ABDOMINAL PAIN [None]
  - ASTHENIA [None]
  - HYPOPHAGIA [None]
  - CARDIAC FAILURE CONGESTIVE [None]
  - RESPIRATORY DISTRESS [None]
  - FLUID RETENTION [None]
  - NAUSEA [None]
  - DYSPNOEA [None]
  - PAIN [None]
  - ABDOMINAL DISCOMFORT [None]
  - INFLUENZA LIKE ILLNESS [None]
  - OXYGEN SATURATION DECREASED [None]
